FAERS Safety Report 25758963 (Version 1)
Quarter: 2025Q3

REPORT INFORMATION
  Report Type: Spontaneous
  Country: CA (occurrence: CA)
  Receive Date: 20250904
  Receipt Date: 20250904
  Transmission Date: 20251021
  Serious: Yes (Other)
  Sender: ROCHE
  Company Number: CA-ROCHE-10000380531

PATIENT
  Age: 61 Year
  Sex: Male

DRUGS (1)
  1. RITUXIMAB [Suspect]
     Active Substance: RITUXIMAB
     Indication: Relapsing multiple sclerosis
     Route: 042

REACTIONS (3)
  - Flushing [Unknown]
  - Off label use [Unknown]
  - Pruritus [Unknown]
